FAERS Safety Report 7422555-5 (Version None)
Quarter: 2011Q2

REPORT INFORMATION
  Report Type: 
  Country: None (occurrence: None)
  Receive Date: 20110419
  Receipt Date: 20110407
  Transmission Date: 20111010
  Serious: Yes (Other)
  Sender: FDA-Public Use
  Company Number: US-CEPHALON-2009010606

PATIENT
  Sex: Female
  Weight: 91 kg

DRUGS (5)
  1. PROVIGIL [Suspect]
     Indication: SOMNOLENCE
     Route: 048
  2. MORPHINE [Concomitant]
  3. ARNICA GEL [Concomitant]
  4. FLORICET [Concomitant]
  5. ASPIRIN [Concomitant]

REACTIONS (5)
  - FALL [None]
  - RIB FRACTURE [None]
  - DRUG TOLERANCE [None]
  - SUICIDAL IDEATION [None]
  - SPINAL CORD INJURY [None]
